FAERS Safety Report 4429530-3 (Version None)
Quarter: 2004Q3

REPORT INFORMATION
  Report Type: 
  Country: None (occurrence: None)
  Receive Date: 20040816
  Receipt Date: 20040809
  Transmission Date: 20050211
  Serious: Yes (Life-Threatening)
  Sender: FDA-Public Use
  Company Number: 2004CG01561

PATIENT
  Age: 96 Year
  Sex: Female

DRUGS (5)
  1. HYTACAND [Suspect]
     Dosage: 16 + 12.5 M QD
     Dates: end: 20040717
  2. SECTRAL [Concomitant]
  3. DI-ANTALVIC [Concomitant]
  4. VIOXX [Concomitant]
  5. IMOVANE [Concomitant]

REACTIONS (3)
  - ABDOMINAL PAIN [None]
  - HYPONATRAEMIA [None]
  - URINE SODIUM INCREASED [None]
